FAERS Safety Report 9059890 (Version 1)
Quarter: 2013Q1

REPORT INFORMATION
  Report Type: Spontaneous
  Country: US (occurrence: None)
  Receive Date: 20130118
  Receipt Date: 20130118
  Transmission Date: 20140127
  Serious: Yes (Hospitalization)
  Sender: FDA-Public Use
  Company Number: 1211-724

PATIENT
  Age: 80 Year
  Sex: Male

DRUGS (5)
  1. EYLEA.:HYDRODIURIL(HYDROCHLOROTHIAZIDE) [Suspect]
     Indication: AGE-RELATED MACULAR DEGENERATION
     Dosage: INTRAVITREAL
     Dates: start: 20121115
  2. HYDRODIURIL (HYDROCHLOROTHIAZIDE) [Concomitant]
  3. ALEVE (NAPROXEN SODIUM) [Concomitant]
  4. CELEXA (CITALOPRAM HYDROBROMIDE) [Concomitant]
  5. OCUVITE (OCUVITE) [Concomitant]

REACTIONS (1)
  - Hypertension [None]
